FAERS Safety Report 17056826 (Version 1)
Quarter: 2019Q4

REPORT INFORMATION
  Report Type: Spontaneous
  Country: US (occurrence: US)
  Receive Date: 20191121
  Receipt Date: 20191121
  Transmission Date: 20200122
  Serious: Yes (Hospitalization, Other)
  Sender: FDA-Public Use
  Company Number: NVSC2019US040874

PATIENT
  Age: 71 Year
  Sex: Male

DRUGS (1)
  1. PAZOPANIB [Suspect]
     Active Substance: PAZOPANIB
     Indication: UNDIFFERENTIATED SARCOMA
     Route: 065

REACTIONS (3)
  - Malignant neoplasm progression [Unknown]
  - Disease recurrence [Unknown]
  - Undifferentiated sarcoma [Unknown]
